FAERS Safety Report 7407968-X (Version None)
Quarter: 2011Q2

REPORT INFORMATION
  Report Type: 
  Country: None (occurrence: None)
  Receive Date: 20110412
  Receipt Date: 20110406
  Transmission Date: 20111010
  Serious: No
  Sender: FDA-Public Use
  Company Number: US-PFIZER INC-2011076718

PATIENT
  Sex: Female
  Weight: 82 kg

DRUGS (1)
  1. AROMASIN [Suspect]
     Indication: BREAST CANCER
     Dosage: 25 MG, DAILY
     Dates: start: 20101001

REACTIONS (2)
  - DRUG INEFFECTIVE [None]
  - HOT FLUSH [None]
